FAERS Safety Report 23145633 (Version 1)
Quarter: 2023Q4

REPORT INFORMATION
  Report Type: Spontaneous
  Country: DE (occurrence: DE)
  Receive Date: 20231103
  Receipt Date: 20231103
  Transmission Date: 20240110
  Serious: Yes (Other)
  Sender: FDA-Public Use
  Company Number: DE-ELI_LILLY_AND_COMPANY-DE202310012755

PATIENT
  Age: 70 Year
  Sex: Female

DRUGS (1)
  1. TALTZ [Suspect]
     Active Substance: IXEKIZUMAB
     Indication: Psoriasis
     Dosage: UNK UNK, UNKNOWN
     Route: 065
     Dates: start: 201812, end: 202306

REACTIONS (4)
  - Bowen^s disease [Unknown]
  - Dermatitis atopic [Recovered/Resolved]
  - Actinic keratosis [Recovered/Resolved]
  - Allergy to arthropod sting [Unknown]

NARRATIVE: CASE EVENT DATE: 20210101
